FAERS Safety Report 6696534-X (Version None)
Quarter: 2010Q2

REPORT INFORMATION
  Report Type: 
  Country: None (occurrence: None)
  Receive Date: 20100426
  Receipt Date: 20100415
  Transmission Date: 20101027
  Serious: Yes (Other)
  Sender: FDA-Public Use
  Company Number: BR-JNJFOC-20100404156

PATIENT
  Age: 43 Year
  Sex: Male
  Weight: 75 kg

DRUGS (4)
  1. HALDOL [Suspect]
     Indication: PSYCHOTIC DISORDER
     Route: 065
  2. HALDOL [Suspect]
     Indication: SCHIZOPHRENIA
     Route: 065
  3. FLUOXETINE [Interacting]
     Indication: ANTIDEPRESSANT THERAPY
     Route: 065
  4. RIVOTRIL [Interacting]
     Indication: ANXIOLYTIC THERAPY
     Route: 065

REACTIONS (7)
  - BLOOD PRESSURE DECREASED [None]
  - DIABETES MELLITUS [None]
  - DRUG INTERACTION [None]
  - HYPERHIDROSIS [None]
  - INCREASED APPETITE [None]
  - RESTLESSNESS [None]
  - TREMOR [None]
